FAERS Safety Report 12113483 (Version 2)
Quarter: 2017Q2

REPORT INFORMATION
  Report Type: Spontaneous
  Country: IN (occurrence: IN)
  Receive Date: 20160225
  Receipt Date: 20170421
  Transmission Date: 20170829
  Serious: Yes (Other)
  Sender: FDA-Public Use
  Company Number: IN-SUN PHARMACEUTICAL INDUSTRIES LTD-2016R1-111908

PATIENT
  Age: 59 Year
  Sex: Female

DRUGS (1)
  1. DICLOFENAC [Suspect]
     Active Substance: DICLOFENAC
     Indication: LIGAMENT SPRAIN
     Route: 065

REACTIONS (3)
  - Erythema multiforme [Recovering/Resolving]
  - Feeding disorder [Unknown]
  - Mouth ulceration [Unknown]
